FAERS Safety Report 4677320-9 (Version None)
Quarter: 2005Q2

REPORT INFORMATION
  Report Type: 
  Country: None (occurrence: None)
  Receive Date: 20050526
  Receipt Date: 20050518
  Transmission Date: 20051028
  Serious: Yes (Death, Hospitalization)
  Sender: FDA-Public Use
  Company Number: 200510327BNE

PATIENT
  Age: 43 Year
  Sex: Male

DRUGS (6)
  1. ASPIRIN [Suspect]
     Indication: MYOCARDIAL INFARCTION
     Dosage: 300 MG, TOTAL DAILY, ORAL
     Route: 048
     Dates: start: 20050422, end: 20050429
  2. REOPRO [Suspect]
     Indication: ACUTE MYOCARDIAL INFARCTION
     Dosage: INTRAVENOUS
     Route: 042
     Dates: start: 20050422, end: 20050423
  3. CLOPIDOGREL BISULFATE [Suspect]
     Indication: CORONARY ARTERIAL STENT INSERTION
     Dosage: 75 MG, TOTAL DAILY, ORAL; 300 MG, TOTAL DAILY, ORAL
     Route: 048
     Dates: start: 20050422, end: 20050429
  4. ENOXAPARIN SODIUM [Suspect]
     Indication: MYOCARDIAL INFARCTION
     Dosage: 40 MG, TOTAL DAILY, SUBCUTANEOUS
     Route: 058
     Dates: end: 20050428
  5. HEPARIN [Suspect]
     Indication: POOR PERIPHERAL CIRCULATION
     Dosage: 5500 IU, TOTAL DAILY, INTRAVEN
     Route: 042
     Dates: start: 20050422
  6. HEPARIN [Suspect]
     Indication: POOR PERIPHERAL CIRCULATION
     Dosage: 5500 IU, TOTAL DAILY, INTRAVEN
     Route: 042
     Dates: start: 20050423

REACTIONS (3)
  - BRAIN DEATH [None]
  - CEREBRAL HAEMORRHAGE [None]
  - THROMBOCYTOPENIA [None]
